FAERS Safety Report 18472495 (Version 1)
Quarter: 2020Q4

REPORT INFORMATION
  Report Type: Spontaneous
  Country: US (occurrence: US)
  Receive Date: 20201106
  Receipt Date: 20201106
  Transmission Date: 20210114
  Serious: Yes (Other)
  Sender: FDA-Public Use
  Company Number: US-VISTAPHARM, INC.-VER202010-001876

PATIENT
  Age: 35 Year
  Sex: Male

DRUGS (4)
  1. LIDOCAINE. [Concomitant]
     Active Substance: LIDOCAINE
     Indication: SKIN ABRASION
     Dosage: 10 MG
  2. CLONIDINE. [Suspect]
     Active Substance: CLONIDINE
     Indication: SKIN ABRASION
     Dosage: 1 MG
  3. KETAMINE [Concomitant]
     Active Substance: KETAMINE
     Indication: SKIN ABRASION
     Dosage: 50 MG
  4. GABAPENTIN. [Suspect]
     Active Substance: GABAPENTIN
     Indication: SKIN ABRASION
     Dosage: 30 MG

REACTIONS (2)
  - Mental impairment [Recovered/Resolved]
  - Product use in unapproved indication [Unknown]
